FAERS Safety Report 11395130 (Version 1)
Quarter: 2015Q3

REPORT INFORMATION
  Report Type: Spontaneous
  Country: BR (occurrence: BR)
  Receive Date: 20150819
  Receipt Date: 20150819
  Transmission Date: 20151125
  Serious: Yes (Other)
  Sender: FDA-Public Use
  Company Number: BR-PFIZER INC-2015270391

PATIENT
  Age: 72 Year
  Sex: Female

DRUGS (1)
  1. CELEBRA [Suspect]
     Active Substance: CELECOXIB
     Indication: SPINAL PAIN
     Dosage: 200 MG, 2X/DAY EVERY 12 HOURS
     Route: 048
     Dates: end: 201502

REACTIONS (4)
  - General physical health deterioration [Unknown]
  - Intentional product misuse [Recovered/Resolved]
  - Intervertebral disc protrusion [Unknown]
  - Inflammation [Unknown]

NARRATIVE: CASE EVENT DATE: 201502
